FAERS Safety Report 5988186-9 (Version None)
Quarter: 2008Q4

REPORT INFORMATION
  Report Type: 
  Country: None (occurrence: None)
  Receive Date: 20081204
  Receipt Date: 20081121
  Transmission Date: 20090506
  Serious: Yes (Other)
  Sender: FDA-Public Use
  Company Number: POMP-1000406

PATIENT
  Age: 3 Year
  Sex: Female

DRUGS (1)
  1. MYOZYME [Suspect]
     Indication: GLYCOGEN STORAGE DISEASE TYPE II
     Dosage: INTRAVENOUS
     Route: 042
     Dates: start: 20050902

REACTIONS (14)
  - ALOPECIA [None]
  - BLOOD IMMUNOGLOBULIN G INCREASED [None]
  - BRONCHIAL DISORDER [None]
  - CARDIAC HYPERTROPHY [None]
  - CARDIOMYOPATHY [None]
  - DEHYDRATION [None]
  - DISEASE PROGRESSION [None]
  - FOREIGN BODY TRAUMA [None]
  - PNEUMONIA [None]
  - RESPIRATORY DISTRESS [None]
  - RESPIRATORY FAILURE [None]
  - RESPIRATORY TRACT INFECTION [None]
  - STREPTOCOCCAL BACTERAEMIA [None]
  - TRACHEITIS [None]
